FAERS Safety Report 4961700-8 (Version None)
Quarter: 2006Q1

REPORT INFORMATION
  Report Type: 
  Country: None (occurrence: None)
  Receive Date: 20060327
  Receipt Date: 20060315
  Transmission Date: 20060701
  Serious: Yes (Hospitalization, Disabling)
  Sender: FDA-Public Use
  Company Number: SEWYE443402MAR06

PATIENT
  Age: 13 Year
  Sex: Male

DRUGS (2)
  1. REFACTO [Suspect]
     Dosage: SEE IMAGE
     Route: 042
     Dates: start: 20060101, end: 20060101
  2. REFACTO [Suspect]
     Dosage: SEE IMAGE
     Route: 042
     Dates: start: 20060101

REACTIONS (3)
  - DRUG EFFECT DECREASED [None]
  - FACTOR VIII INHIBITION [None]
  - MUSCLE HAEMORRHAGE [None]
